FAERS Safety Report 11829838 (Version 2)
Quarter: 2015Q4

REPORT INFORMATION
  Report Type: Spontaneous
  Country: JP (occurrence: JP)
  Receive Date: 20151212
  Receipt Date: 20151212
  Transmission Date: 20160305
  Serious: Yes (Other)
  Sender: FDA-Public Use
  Company Number: JP-ASTRAZENECA-2015SF12216

PATIENT
  Age: 884 Month
  Sex: Female
  Weight: 45 kg

DRUGS (8)
  1. BYDUREON [Suspect]
     Active Substance: EXENATIDE
     Indication: DIABETES MELLITUS
     Route: 058
     Dates: start: 20150510, end: 201507
  2. BYDUREON [Suspect]
     Active Substance: EXENATIDE
     Indication: DIABETES MELLITUS
     Route: 058
     Dates: start: 201507, end: 201510
  3. LENDORMIN D [Concomitant]
     Active Substance: BROTIZOLAM
  4. BIO-THREE [Concomitant]
     Active Substance: HERBALS
  5. BYDUREON [Suspect]
     Active Substance: EXENATIDE
     Indication: DIABETES MELLITUS
     Route: 058
     Dates: start: 20150430
  6. METHYCOBAL [Concomitant]
     Active Substance: METHYLCOBALAMIN
  7. EPADEL S [Concomitant]
     Active Substance: ICOSAPENT ETHYL
  8. FEBURIC [Concomitant]
     Active Substance: FEBUXOSTAT
     Indication: HYPERURICAEMIA

REACTIONS (3)
  - Blood pressure decreased [Recovering/Resolving]
  - Weight decreased [Recovering/Resolving]
  - Decreased appetite [Recovering/Resolving]

NARRATIVE: CASE EVENT DATE: 201506
